FAERS Safety Report 5477271-6 (Version None)
Quarter: 2007Q4

REPORT INFORMATION
  Report Type: 
  Country: None (occurrence: None)
  Receive Date: 20071004
  Receipt Date: 20070924
  Transmission Date: 20080405
  Serious: Yes (Hospitalization)
  Sender: FDA-Public Use
  Company Number: FR-PFIZER INC-2007080332

PATIENT
  Sex: Female

DRUGS (5)
  1. AMLOR [Suspect]
     Indication: ANGINA PECTORIS
     Route: 048
     Dates: start: 20070710, end: 20070718
  2. BISOPROLOL FUMARATE [Suspect]
     Indication: HYPERTENSION
     Route: 048
     Dates: start: 20070710, end: 20070718
  3. ZOCOR [Concomitant]
     Route: 048
  4. KARDEGIC [Concomitant]
     Route: 048
  5. PLAVIX [Concomitant]
     Route: 048

REACTIONS (2)
  - FACE OEDEMA [None]
  - OEDEMA PERIPHERAL [None]
